FAERS Safety Report 13956560 (Version 1)
Quarter: 2017Q3

REPORT INFORMATION
  Report Type: Spontaneous
  Country: FR (occurrence: FR)
  Receive Date: 20170911
  Receipt Date: 20170911
  Transmission Date: 20171128
  Serious: Yes (Other)
  Sender: FDA-Public Use
  Company Number: FR-PFIZER INC-2017385168

PATIENT
  Age: 65 Year
  Sex: Male

DRUGS (1)
  1. SUTENT [Suspect]
     Active Substance: SUNITINIB MALATE

REACTIONS (4)
  - Haematotoxicity [Recovered/Resolved]
  - Yellow skin [Recovered/Resolved]
  - Hepatotoxicity [Recovered/Resolved]
  - Skin toxicity [Recovered/Resolved]
